FAERS Safety Report 10081638 (Version 2)
Quarter: 2014Q2

REPORT INFORMATION
  Report Type: Spontaneous
  Country: US (occurrence: US)
  Receive Date: 20140416
  Receipt Date: 20140428
  Transmission Date: 20141212
  Serious: No
  Sender: FDA-Public Use
  Company Number: US-B.I. PHARMACEUTICALS,INC./RIDGEFIELD-2014-BI-15821BP

PATIENT
  Age: 78 Year
  Sex: Female

DRUGS (12)
  1. SPIRIVA [Suspect]
     Indication: CHRONIC OBSTRUCTIVE PULMONARY DISEASE
     Dosage: 18 MCG
     Route: 055
     Dates: start: 201403
  2. ALBUTEROL [Concomitant]
     Indication: CHRONIC OBSTRUCTIVE PULMONARY DISEASE
     Route: 055
  3. SYMBICORT [Concomitant]
     Indication: CHRONIC OBSTRUCTIVE PULMONARY DISEASE
     Dosage: 4 PUF
     Route: 055
  4. BUSPAR [Concomitant]
     Indication: ANXIETY
     Dosage: 30 MG
     Route: 048
  5. SIMVASTATIN [Concomitant]
     Indication: BLOOD CHOLESTEROL INCREASED
     Dosage: 40 MG
     Route: 048
  6. VERAPAMIL [Concomitant]
     Indication: HYPERTENSION
     Dosage: 120 MG
     Route: 048
  7. HYDROXYZ  HCL [Concomitant]
     Indication: ANXIETY
     Dosage: 30 MG
     Route: 048
  8. ALLEGRA [Concomitant]
     Indication: SEASONAL ALLERGY
     Dosage: 1 ANZ
     Route: 048
  9. LEVOTHYROXINE [Concomitant]
     Indication: HYPOTHYROIDISM
     Dosage: 0.25 MG
     Route: 048
  10. PREDNISONE [Concomitant]
     Indication: CHRONIC OBSTRUCTIVE PULMONARY DISEASE
     Dosage: 1.4286 MG
     Route: 065
  11. LASIX [Concomitant]
     Indication: FLUID RETENTION
     Dosage: 10 MG
     Route: 065
  12. LORAZEPAM [Concomitant]
     Indication: ANXIETY
     Dosage: 1 MG
     Route: 065

REACTIONS (3)
  - Dyspnoea [Unknown]
  - Product quality issue [Unknown]
  - Product quality issue [Unknown]
